FAERS Safety Report 18223171 (Version 1)
Quarter: 2020Q3

REPORT INFORMATION
  Report Type: Spontaneous
  Country: US (occurrence: US)
  Receive Date: 20200902
  Receipt Date: 20200902
  Transmission Date: 20201103
  Serious: No
  Sender: FDA-Public Use
  Company Number: None

PATIENT
  Age: 55 Year
  Sex: Female

DRUGS (19)
  1. SUMITRIPTAN [Concomitant]
     Active Substance: SUMATRIPTAN
  2. TUMERIC [Concomitant]
     Active Substance: HERBALS\TURMERIC
  3. HYDROCODONE [Concomitant]
     Active Substance: HYDROCODONE
  4. BUPROPION. [Concomitant]
     Active Substance: BUPROPION
  5. VERAPAMIL [Concomitant]
     Active Substance: VERAPAMIL HYDROCHLORIDE
  6. ALPRAZOLAM. [Concomitant]
     Active Substance: ALPRAZOLAM
  7. VITAMIN B12 [Concomitant]
     Active Substance: CYANOCOBALAMIN
  8. MAGNESIUM [Concomitant]
     Active Substance: MAGNESIUM
  9. IRON [Concomitant]
     Active Substance: IRON
  10. DULOXETINE. [Concomitant]
     Active Substance: DULOXETINE
  11. AIMOVIG [Concomitant]
     Active Substance: ERENUMAB-AOOE
  12. AIMOVIG [Suspect]
     Active Substance: ERENUMAB-AOOE
     Dosage: ?          QUANTITY:1 INJECTION(S);OTHER FREQUENCY:MONTHLY;?
     Route: 030
     Dates: start: 20191114
  13. TRAZODONE [Concomitant]
     Active Substance: TRAZODONE HYDROCHLORIDE
  14. VITAMIN C [Concomitant]
     Active Substance: ASCORBIC ACID
  15. CRANBERRY EXTRACT [Concomitant]
     Active Substance: CRANBERRY JUICE
  16. ACYCLOVIR. [Concomitant]
     Active Substance: ACYCLOVIR
  17. NURTEC ODT [Concomitant]
     Active Substance: RIMEGEPANT SULFATE
  18. LANTANAPROST [Concomitant]
  19. ALPHAGAN P [Concomitant]
     Active Substance: BRIMONIDINE TARTRATE

REACTIONS (2)
  - Blood pressure increased [None]
  - Constipation [None]

NARRATIVE: CASE EVENT DATE: 20200201
